FAERS Safety Report 9586318 (Version 1)
Quarter: 2013Q4

REPORT INFORMATION
  Report Type: Spontaneous
  Country: BR (occurrence: BR)
  Receive Date: 20131003
  Receipt Date: 20131003
  Transmission Date: 20140711
  Serious: Yes (Death, Hospitalization, Other)
  Sender: FDA-Public Use
  Company Number: PHHY2013BR109511

PATIENT
  Age: 91 Year
  Sex: Male
  Weight: 64 kg

DRUGS (3)
  1. FORASEQ [Suspect]
     Indication: ASTHMA
     Dosage: 1 DF, 1 CAPSULE DAILY OF EACH TREATMENT
  2. SIMVASTATIN [Concomitant]
     Dosage: UNK UKN, UNK
  3. MOTILIUM ^BYK GULDEN^ [Concomitant]
     Dosage: UNK UKN, UNK

REACTIONS (10)
  - Pulmonary sepsis [Fatal]
  - Pneumonia [Fatal]
  - Cardiac disorder [Fatal]
  - Renal disorder [Fatal]
  - Diet refusal [Fatal]
  - Heart rate decreased [Recovered/Resolved]
  - Thyroid disorder [Recovered/Resolved]
  - Hypotension [Unknown]
  - Influenza [Unknown]
  - Hypertension [Unknown]
